FAERS Safety Report 8199216-0 (Version None)
Quarter: 2012Q1

REPORT INFORMATION
  Report Type: 
  Country: None (occurrence: None)
  Receive Date: 20120309
  Receipt Date: 20120306
  Transmission Date: 20120608
  Serious: Yes (Other)
  Sender: FDA-Public Use
  Company Number: US-PFIZER INC-2008155043

PATIENT
  Sex: Female
  Weight: 70.748 kg

DRUGS (13)
  1. ACETYLSALICYLIC ACID [Concomitant]
     Indication: CARDIAC DISORDER
     Dosage: UNK
  2. OMEPRAZOLE [Suspect]
     Indication: GASTROOESOPHAGEAL REFLUX DISEASE
     Dosage: 20 MG, DAILY
     Route: 048
  3. CYMBALTA [Concomitant]
     Indication: SUICIDAL IDEATION
     Dosage: 90 MG, DAILY
  4. XANAX [Suspect]
     Dosage: UNK
  5. PERCOCET [Suspect]
     Indication: PAIN
     Dosage: UNK
  6. DURAGESIC-100 [Suspect]
     Dosage: UNK
     Route: 062
  7. ZYPREXA [Concomitant]
     Indication: ANXIETY
     Dosage: 2.5 MG,DAILY
  8. CYMBALTA [Concomitant]
     Indication: ANXIETY
  9. LYRICA [Suspect]
     Indication: COMPLEX REGIONAL PAIN SYNDROME
     Dosage: 225 MG, 1X/DAY
     Dates: start: 20060101, end: 20081101
  10. LYRICA [Suspect]
     Indication: NEURALGIA
     Dosage: 225 MG, 2X/DAY
     Route: 048
  11. LYRICA [Suspect]
     Indication: FIBROMYALGIA
     Dosage: 225 MG, DAILY
  12. PLAVIX [Concomitant]
     Indication: CARDIAC DISORDER
     Dosage: 75 MG,DAILY
  13. CYMBALTA [Concomitant]
     Indication: DEPRESSION
     Dosage: UNK

REACTIONS (9)
  - BLOOD PRESSURE INCREASED [None]
  - WITHDRAWAL SYNDROME [None]
  - FEELING ABNORMAL [None]
  - LIVER DISORDER [None]
  - MYOCARDIAL INFARCTION [None]
  - HAND FRACTURE [None]
  - MALAISE [None]
  - WEIGHT INCREASED [None]
  - TYPE 2 DIABETES MELLITUS [None]
